FAERS Safety Report 20256043 (Version 2)
Quarter: 2022Q1

REPORT INFORMATION
  Report Type: Report from Study
  Country: MX (occurrence: MX)
  Receive Date: 20211230
  Receipt Date: 20220106
  Transmission Date: 20220423
  Serious: Yes (Hospitalization, Other)
  Sender: FDA-Public Use
  Company Number: MX-UCBSA-2021060231

PATIENT
  Sex: Male
  Weight: 58 kg

DRUGS (5)
  1. LEVETIRACETAM [Suspect]
     Active Substance: LEVETIRACETAM
     Indication: Epilepsy
     Dosage: UNK
  2. LEVETIRACETAM [Suspect]
     Active Substance: LEVETIRACETAM
     Dosage: 1 GRAM, 3X/DAY (TID)
     Route: 048
     Dates: start: 20211102
  3. OXCARBAZEPINE [Concomitant]
     Active Substance: OXCARBAZEPINE
     Indication: Product used for unknown indication
  4. TOPAMAX [Concomitant]
     Active Substance: TOPIRAMATE
     Indication: Product used for unknown indication
  5. AFINITOR [Concomitant]
     Active Substance: EVEROLIMUS
     Indication: Product used for unknown indication

REACTIONS (7)
  - Seizure [Unknown]
  - Tuberous sclerosis complex [Recovering/Resolving]
  - Epilepsy [Unknown]
  - Haemangioma [Unknown]
  - Weight decreased [Recovering/Resolving]
  - Body height increased [Recovering/Resolving]
  - Off label use [Unknown]
